FAERS Safety Report 8361824-1 (Version None)
Quarter: 2012Q2

REPORT INFORMATION
  Report Type: 
  Country: None (occurrence: None)
  Receive Date: 20120515
  Receipt Date: 20120509
  Transmission Date: 20120825
  Serious: Yes (Hospitalization, Congenital Anomaly)
  Sender: FDA-Public Use
  Company Number: FR-GLAXOSMITHKLINE-B0800305A

PATIENT
  Sex: Female

DRUGS (5)
  1. ACETAMINOPHEN [Concomitant]
     Indication: MIGRAINE
     Route: 064
  2. MORPHINE [Concomitant]
     Indication: MIGRAINE
     Route: 064
  3. NOCERTONE [Concomitant]
  4. SUMATRIPTAN SUCCINATE [Suspect]
     Indication: MIGRAINE
     Dosage: 10UNIT CUMULATIVE DOSE
     Route: 064
  5. RELPAX [Suspect]
     Indication: MIGRAINE
     Route: 064

REACTIONS (2)
  - CRANIOSYNOSTOSIS [None]
  - FOETAL EXPOSURE DURING PREGNANCY [None]
